FAERS Safety Report 5988644-7 (Version None)
Quarter: 2008Q4

REPORT INFORMATION
  Report Type: 
  Country: None (occurrence: None)
  Receive Date: 20081208
  Receipt Date: 20081208
  Transmission Date: 20090506
  Serious: Yes (Other)
  Sender: FDA-Public Use
  Company Number: None

PATIENT
  Sex: Female
  Weight: 68.9467 kg

DRUGS (1)
  1. 4 WAY FAST ACTING NASAL DECONGES 1% SOLUTION NOVARTIS [Suspect]
     Indication: SINUSITIS
     Dosage: 2-3 SPRAYS EACH NOSTRIL EVERY 4 HOURS NASAL
     Route: 045
     Dates: start: 20081203, end: 20081203

REACTIONS (3)
  - DYSPNOEA [None]
  - SIMILAR REACTION ON PREVIOUS EXPOSURE TO DRUG [None]
  - THROAT TIGHTNESS [None]
